FAERS Safety Report 16067489 (Version 1)
Quarter: 2019Q1

REPORT INFORMATION
  Report Type: Report from Study
  Country: JP (occurrence: JP)
  Receive Date: 20190313
  Receipt Date: 20190313
  Transmission Date: 20190418
  Serious: Yes (Life-Threatening, Hospitalization)
  Sender: FDA-Public Use
  Company Number: JP-TAKEDA-2019TUS013658

PATIENT
  Age: 77 Year
  Sex: Female
  Weight: 53.5 kg

DRUGS (16)
  1. FEBUXOSTAT. [Suspect]
     Active Substance: FEBUXOSTAT
     Indication: TUMOUR LYSIS SYNDROME
     Dosage: 40 MILLIGRAM, QD
     Route: 048
     Dates: start: 20181002, end: 20181025
  2. CYTARABINE. [Suspect]
     Active Substance: CYTARABINE
     Indication: ACUTE MYELOID LEUKAEMIA
     Dosage: 29.8 MILLIGRAM, QD
     Route: 065
     Dates: start: 20181003, end: 20181016
  3. NALDEMEDINE TOSILATE [Concomitant]
     Active Substance: NALDEMEDINE TOSYLATE
     Indication: CONSTIPATION
     Dosage: 0.2 MILLIGRAM, QD
     Route: 048
     Dates: start: 20181028
  4. ACLARUBICIN HYDROCHLORIDE [Suspect]
     Active Substance: ACLARUBICIN HYDROCHLORIDE
     Indication: ACUTE MYELOID LEUKAEMIA
     Dosage: 20 MILLIGRAM, QD
     Route: 065
     Dates: start: 20181003, end: 20181006
  5. VALACICLOVIR                       /01269702/ [Concomitant]
     Active Substance: VALACYCLOVIR HYDROCHLORIDE
     Indication: ORAL HERPES
     Dosage: 500 MILLIGRAM, BID
     Route: 048
     Dates: start: 20181004, end: 20181010
  6. OXIFAST [Concomitant]
     Active Substance: OXYCODONE
     Indication: DYSPNOEA
     Dosage: 4.8 MILLIGRAM, QD
     Route: 065
     Dates: start: 20181024
  7. VANCOMYCIN                         /00314402/ [Suspect]
     Active Substance: VANCOMYCIN
     Indication: FEBRILE NEUTROPENIA
     Dosage: 1 GRAM, BID
     Route: 065
     Dates: start: 20181018, end: 20181024
  8. BIOFERMIN R [Concomitant]
     Active Substance: BACILLUS SUBTILIS\LACTOBACILLUS ACIDOPHILUS\STREPTOCOCCUS FAECAIS
     Indication: DIARRHOEA
     Dosage: 1 GRAM, TID
     Route: 048
     Dates: start: 20181013, end: 20181019
  9. TAKEPRON [Concomitant]
     Active Substance: LANSOPRAZOLE
     Indication: PROPHYLAXIS
     Dosage: 30 MILLIGRAM, BID
     Route: 065
     Dates: start: 20181026
  10. SENNOSIDE                          /00571901/ [Concomitant]
     Active Substance: SENNOSIDES A AND B
     Indication: CONSTIPATION
     Dosage: 24 MILLIGRAM, QD
     Route: 048
     Dates: start: 20181028
  11. SAMSCA [Concomitant]
     Active Substance: TOLVAPTAN
     Indication: FLUID RETENTION
     Dosage: 7.5 MILLIGRAM, QD
     Route: 048
     Dates: start: 20181029
  12. GRANISETRON [Concomitant]
     Active Substance: GRANISETRON
     Indication: PROPHYLAXIS
     Dosage: 1 MILLIGRAM, QD
     Route: 065
     Dates: start: 20181003, end: 20181006
  13. TAKECAB [Concomitant]
     Active Substance: VONOPRAZAN FUMURATE
     Indication: PROPHYLAXIS
     Dosage: 20 MILLIGRAM, QD
     Route: 048
     Dates: start: 20181002, end: 20181025
  14. MEDICON                            /00048102/ [Concomitant]
     Active Substance: DEXTROMETHORPHAN HYDROBROMIDE
     Indication: UPPER RESPIRATORY TRACT INFLAMMATION
     Dosage: 15 MILLIGRAM, TID
     Route: 048
     Dates: start: 20181003, end: 20181017
  15. ITRIZOLE [Concomitant]
     Active Substance: ITRACONAZOLE
     Indication: PROPHYLAXIS
     Dosage: 20 MILLILITER, QD
     Route: 048
     Dates: start: 20181005, end: 20181022
  16. CARBOCISTEINE [Concomitant]
     Active Substance: CARBOCYSTEINE
     Indication: UPPER RESPIRATORY TRACT INFLAMMATION
     Dosage: 500 MILLIGRAM, TID
     Route: 048
     Dates: start: 20181003, end: 20181017

REACTIONS (5)
  - Nephropathy toxic [Not Recovered/Not Resolved]
  - Anaemia [Not Recovered/Not Resolved]
  - Platelet count decreased [Recovering/Resolving]
  - Febrile neutropenia [Recovering/Resolving]
  - Atrial fibrillation [Not Recovered/Not Resolved]

NARRATIVE: CASE EVENT DATE: 20181002
